FAERS Safety Report 16722087 (Version 2)
Quarter: 2019Q4

REPORT INFORMATION
  Report Type: Spontaneous
  Country: US (occurrence: US)
  Receive Date: 20190820
  Receipt Date: 20191119
  Transmission Date: 20200122
  Serious: No
  Sender: FDA-Public Use
  Company Number: US-SHIRE-US201927103

PATIENT
  Age: 18 Year
  Sex: Female

DRUGS (2)
  1. TAKHZYRO [Suspect]
     Active Substance: LANADELUMAB-FLYO
     Indication: PRODUCT USED FOR UNKNOWN INDICATION
     Dosage: 300 MILLIGRAM, 1X/2WKS
     Route: 065
     Dates: start: 20190221
  2. FIRAZYR [Suspect]
     Active Substance: ICATIBANT ACETATE
     Indication: PRODUCT USED FOR UNKNOWN INDICATION
     Dosage: 30 MILLIGRAM, AS REQ^D
     Route: 065
     Dates: start: 20190317

REACTIONS (1)
  - Hereditary angioedema [Unknown]

NARRATIVE: CASE EVENT DATE: 20190715
